FAERS Safety Report 7219430-8 (Version None)
Quarter: 2011Q1

REPORT INFORMATION
  Report Type: 
  Country: None (occurrence: None)
  Receive Date: 20110111
  Receipt Date: 20110103
  Transmission Date: 20110831
  Serious: No
  Sender: FDA-Public Use
  Company Number: US-PFIZER INC-US-WYE-H11123809

PATIENT
  Sex: Female

DRUGS (5)
  1. HYDROCHLOROTHIAZIDE [Concomitant]
  2. EFFEXOR [Suspect]
     Dosage: UNSPECIFIED
     Route: 065
  3. LYRICA [Suspect]
     Indication: FIBROMYALGIA
     Dosage: 1 DF, 1X/DAY
     Route: 048
     Dates: start: 20090801, end: 20090815
  4. LYRICA [Suspect]
     Indication: PAIN
  5. DI-GESIC [Concomitant]

REACTIONS (4)
  - DRUG WITHDRAWAL SYNDROME [None]
  - VISION BLURRED [None]
  - ANXIETY [None]
  - WEIGHT INCREASED [None]
